FAERS Safety Report 21710643 (Version 3)
Quarter: 2023Q1

REPORT INFORMATION
  Report Type: Report from Study
  Country: US (occurrence: US)
  Receive Date: 20221212
  Receipt Date: 20230222
  Transmission Date: 20230418
  Serious: No
  Sender: FDA-Public Use
  Company Number: US-002147023-NVSC2022US285820

PATIENT
  Sex: Male

DRUGS (3)
  1. COSENTYX [Suspect]
     Active Substance: SECUKINUMAB
     Indication: Psoriasis
     Dosage: 150 MG, QW (WEEK 0, 1, 2, 3, 4 4 WEEKS THEREAFTER)
     Route: 058
  2. COSENTYX [Suspect]
     Active Substance: SECUKINUMAB
     Dosage: 150 MG, QMO (EVERY 4 WEEKS)
     Route: 058
  3. COSENTYX [Suspect]
     Active Substance: SECUKINUMAB
     Dosage: UNK (LAST DOSE IN NOV)
     Route: 065

REACTIONS (5)
  - Condition aggravated [Unknown]
  - Blister [Unknown]
  - Pruritus [Unknown]
  - Blister rupture [Unknown]
  - Drug ineffective [Unknown]
